FAERS Safety Report 18936788 (Version 1)
Quarter: 2021Q1

REPORT INFORMATION
  Report Type: Spontaneous
  Country: NO (occurrence: NO)
  Receive Date: 20210224
  Receipt Date: 20210224
  Transmission Date: 20210420
  Serious: Yes (Other)
  Sender: FDA-Public Use
  Company Number: NO-PFIZER INC-2021156724

PATIENT
  Sex: Female

DRUGS (1)
  1. TERRA?CORTRIL POLYMYXIN B [Suspect]
     Active Substance: HYDROCORTISONE\OXYTETRACYCLINE HYDROCHLORIDE\POLYMYXIN B SULFATE
     Dosage: UNK
     Route: 001

REACTIONS (4)
  - Hypoacusis [Not Recovered/Not Resolved]
  - Wrong dose [Unknown]
  - Ear discomfort [Unknown]
  - Wrong technique in product usage process [Not Recovered/Not Resolved]
